FAERS Safety Report 25648966 (Version 2)
Quarter: 2025Q3

REPORT INFORMATION
  Report Type: Spontaneous
  Country: US (occurrence: US)
  Receive Date: 20250806
  Receipt Date: 20250820
  Transmission Date: 20251021
  Serious: Yes (Hospitalization, Other)
  Sender: RISING PHARMACEUTICALS
  Company Number: US-RISINGPHARMA-US-2025RISLIT00376

PATIENT
  Age: 56 Year
  Sex: Female

DRUGS (15)
  1. MORPHINE SULFATE [Suspect]
     Active Substance: MORPHINE SULFATE
     Indication: Plasma cell myeloma
     Route: 037
  2. MORPHINE SULFATE [Suspect]
     Active Substance: MORPHINE SULFATE
     Indication: Cancer pain
     Route: 037
  3. MORPHINE SULFATE [Suspect]
     Active Substance: MORPHINE SULFATE
     Route: 037
  4. BUPIVACAINE [Suspect]
     Active Substance: BUPIVACAINE
     Indication: Plasma cell myeloma
     Route: 037
  5. BUPIVACAINE [Suspect]
     Active Substance: BUPIVACAINE
     Indication: Cancer pain
     Route: 037
  6. BUPIVACAINE [Suspect]
     Active Substance: BUPIVACAINE
     Route: 037
  7. ZICONOTIDE [Suspect]
     Active Substance: ZICONOTIDE
     Indication: Plasma cell myeloma
     Route: 037
  8. ZICONOTIDE [Suspect]
     Active Substance: ZICONOTIDE
     Indication: Cancer pain
     Route: 037
  9. ZICONOTIDE [Suspect]
     Active Substance: ZICONOTIDE
     Dosage: 0.04 MICROGRAMS
     Route: 037
  10. CITALOPRAM [Concomitant]
     Active Substance: CITALOPRAM
     Indication: Product used for unknown indication
     Route: 065
  11. BACLOFEN [Concomitant]
     Active Substance: BACLOFEN
     Indication: Product used for unknown indication
     Route: 065
  12. LORAZEPAM [Concomitant]
     Active Substance: LORAZEPAM
     Indication: Product used for unknown indication
     Route: 042
  13. METHYLPHENIDATE [Concomitant]
     Active Substance: METHYLPHENIDATE
     Indication: Product used for unknown indication
     Route: 065
  14. APIXABAN [Concomitant]
     Active Substance: APIXABAN
     Indication: Product used for unknown indication
     Route: 065
  15. ONDANSETRON [Concomitant]
     Active Substance: ONDANSETRON
     Indication: Product used for unknown indication
     Route: 065

REACTIONS (8)
  - Tardive akathisia [Recovered/Resolved]
  - Drug withdrawal syndrome [Recovered/Resolved]
  - Anxiety [Recovered/Resolved]
  - Nausea [Recovered/Resolved]
  - Vomiting [Recovered/Resolved]
  - Pruritus [Recovered/Resolved]
  - Sedation [Recovered/Resolved]
  - Product administration error [Unknown]
